FAERS Safety Report 7916838-X (Version None)
Quarter: 2011Q4

REPORT INFORMATION
  Report Type: 
  Country: None (occurrence: None)
  Receive Date: 20111116
  Receipt Date: 20111107
  Transmission Date: 20120403
  Serious: Yes (Other)
  Sender: FDA-Public Use
  Company Number: JP-BRISTOL-MYERS SQUIBB COMPANY-16230237

PATIENT
  Age: 69 Year
  Sex: Male

DRUGS (8)
  1. METFORMIN HCL [Suspect]
     Indication: TYPE 2 DIABETES MELLITUS
     Route: 048
     Dates: start: 20110714, end: 20111006
  2. ASPIRIN [Concomitant]
  3. METFORMIN HCL [Concomitant]
     Route: 048
     Dates: start: 20100218, end: 20110714
  4. CRESTOR [Concomitant]
  5. BASEN [Concomitant]
  6. GASMOTIN [Concomitant]
  7. AMARYL [Concomitant]
  8. LANSOPRAZOLE [Concomitant]

REACTIONS (1)
  - HEPATIC FUNCTION ABNORMAL [None]
